FAERS Safety Report 25262892 (Version 2)
Quarter: 2025Q2

REPORT INFORMATION
  Report Type: Spontaneous
  Country: IR (occurrence: IR)
  Receive Date: 20250502
  Receipt Date: 20250509
  Transmission Date: 20250716
  Serious: Yes (Other)
  Sender: MYLAN
  Company Number: IR-MYLANLABS-2025M1037440

PATIENT
  Age: 32 Year
  Sex: Female

DRUGS (12)
  1. METHOTREXATE [Suspect]
     Active Substance: METHOTREXATE
     Indication: Abortion of ectopic pregnancy
  2. METHOTREXATE [Suspect]
     Active Substance: METHOTREXATE
     Indication: Ectopic pregnancy
     Route: 019
  3. METHOTREXATE [Suspect]
     Active Substance: METHOTREXATE
     Route: 019
  4. METHOTREXATE [Suspect]
     Active Substance: METHOTREXATE
  5. POTASSIUM CHLORIDE [Suspect]
     Active Substance: POTASSIUM CHLORIDE
     Indication: Abortion of ectopic pregnancy
  6. POTASSIUM CHLORIDE [Suspect]
     Active Substance: POTASSIUM CHLORIDE
     Indication: Ectopic pregnancy
     Route: 019
  7. POTASSIUM CHLORIDE [Suspect]
     Active Substance: POTASSIUM CHLORIDE
     Route: 019
  8. POTASSIUM CHLORIDE [Suspect]
     Active Substance: POTASSIUM CHLORIDE
  9. MISOPROSTOL [Concomitant]
     Active Substance: MISOPROSTOL
     Indication: Evacuation of retained products of conception
  10. MISOPROSTOL [Concomitant]
     Active Substance: MISOPROSTOL
     Route: 065
  11. MISOPROSTOL [Concomitant]
     Active Substance: MISOPROSTOL
     Route: 065
  12. MISOPROSTOL [Concomitant]
     Active Substance: MISOPROSTOL

REACTIONS (3)
  - Abortion [Recovered/Resolved]
  - Maternal exposure during pregnancy [Recovered/Resolved]
  - Off label use [Unknown]
